FAERS Safety Report 23457695 (Version 2)
Quarter: 2024Q1

REPORT INFORMATION
  Report Type: Spontaneous
  Country: ES (occurrence: ES)
  Receive Date: 20240130
  Receipt Date: 20240201
  Transmission Date: 20240410
  Serious: Yes (Hospitalization)
  Sender: FDA-Public Use
  Company Number: None

PATIENT
  Age: 58 Year
  Sex: Male

DRUGS (2)
  1. DAUNORUBICIN HYDROCHLORIDE [Interacting]
     Active Substance: DAUNORUBICIN HYDROCHLORIDE
     Indication: Acute myeloid leukaemia
     Dosage: 125 MG, 1X/DAY
     Route: 042
     Dates: start: 20231205
  2. CYTARABINE [Interacting]
     Active Substance: CYTARABINE
     Indication: Acute myeloid leukaemia
     Dosage: 2080 MG, 1X/DAY
     Route: 042
     Dates: start: 20231205

REACTIONS (2)
  - H1N1 influenza [Recovered/Resolved]
  - Drug interaction [Unknown]

NARRATIVE: CASE EVENT DATE: 20231221
